FAERS Safety Report 8574472-5 (Version None)
Quarter: 2012Q3

REPORT INFORMATION
  Report Type: 
  Country: None (occurrence: None)
  Receive Date: 20120806
  Receipt Date: 20120521
  Transmission Date: 20120928
  Serious: No
  Sender: FDA-Public Use
  Company Number: US-ABBOTT-12P-163-0937661-00

PATIENT
  Age: 40 Year
  Sex: Male
  Weight: 95.34 kg

DRUGS (1)
  1. DEPAKOTE ER [Suspect]
     Indication: BIPOLAR DISORDER
     Dosage: 2000 MG DAILY
     Dates: start: 20000101

REACTIONS (1)
  - IMPAIRED DRIVING ABILITY [None]
